FAERS Safety Report 6554937-8 (Version None)
Quarter: 2010Q1

REPORT INFORMATION
  Report Type: 
  Country: None (occurrence: None)
  Receive Date: 20100126
  Receipt Date: 20100108
  Transmission Date: 20100710
  Serious: Yes (Death, Hospitalization, Other)
  Sender: FDA-Public Use
  Company Number: AUR-APL-2010-00067

PATIENT
  Age: 53 Year
  Sex: Male

DRUGS (6)
  1. SIMVASTATIN [Suspect]
     Indication: BLOOD CHOLESTEROL ABNORMAL
  2. WARFARIN SODIUM [Suspect]
     Indication: DEEP VEIN THROMBOSIS
  3. ASPIRIN [Concomitant]
  4. DIPYRIDAMOLE [Concomitant]
  5. SALICYLATES NOS [Concomitant]
  6. PROTON PUMP INHIBITOR [Concomitant]

REACTIONS (17)
  - ACUTE RESPIRATORY DISTRESS SYNDROME [None]
  - ALCOHOL USE [None]
  - ANTIPHOSPHOLIPID SYNDROME [None]
  - BALANCE DISORDER [None]
  - DEEP VEIN THROMBOSIS [None]
  - DIPLOPIA [None]
  - DIZZINESS [None]
  - HAEMATEMESIS [None]
  - INTERNATIONAL NORMALISED RATIO INCREASED [None]
  - LIVEDO RETICULARIS [None]
  - MELAENA [None]
  - PLATELET COUNT INCREASED [None]
  - PULMONARY EMBOLISM [None]
  - RASH [None]
  - RENAL FAILURE [None]
  - SPEECH DISORDER [None]
  - VOMITING [None]
